FAERS Safety Report 7634586-0 (Version None)
Quarter: 2011Q3

REPORT INFORMATION
  Report Type: 
  Country: None (occurrence: None)
  Receive Date: 20110725
  Receipt Date: 20110718
  Transmission Date: 20111222
  Serious: Yes (Other)
  Sender: FDA-Public Use
  Company Number: BE-ABBOTT-11P-013-0836631-00

PATIENT

DRUGS (1)
  1. CLARITHROMYCIN [Suspect]
     Indication: PRODUCT USED FOR UNKNOWN INDICATION
     Dosage: 4 TABS ON 03 JUL (AM + PM 2 TABS) - 2 TABS ON 04 JUL (MORNING)
     Route: 048
     Dates: start: 20110703, end: 20110704

REACTIONS (1)
  - ABORTION INDUCED [None]
